FAERS Safety Report 11457557 (Version 1)
Quarter: 2015Q3

REPORT INFORMATION
  Report Type: Spontaneous
  Country: US (occurrence: US)
  Receive Date: 20150904
  Receipt Date: 20150904
  Transmission Date: 20151125
  Serious: No
  Sender: FDA-Public Use
  Company Number: US-TEVA-591489ACC

PATIENT
  Age: 18 Year
  Sex: Female
  Weight: 58.11 kg

DRUGS (1)
  1. PLAN B ONE-STEP [Suspect]
     Active Substance: LEVONORGESTREL
     Indication: POST COITAL CONTRACEPTION
     Dates: start: 20150707, end: 20150707

REACTIONS (3)
  - Menstruation irregular [Not Recovered/Not Resolved]
  - Vaginal haemorrhage [Recovered/Resolved]
  - Wisdom teeth removal [Recovered/Resolved]

NARRATIVE: CASE EVENT DATE: 20150717
